FAERS Safety Report 24397798 (Version 1)
Quarter: 2024Q4

REPORT INFORMATION
  Report Type: Spontaneous
  Country: US (occurrence: US)
  Receive Date: 20241004
  Receipt Date: 20241004
  Transmission Date: 20250115
  Serious: Yes (Hospitalization, Other)
  Sender: BRISTOL MYERS SQUIBB
  Company Number: US-BRISTOL-MYERS SQUIBB COMPANY-2024-153270

PATIENT
  Age: 46 Year
  Sex: Male

DRUGS (1)
  1. LENALIDOMIDE [Suspect]
     Active Substance: LENALIDOMIDE
     Indication: Monoclonal gammopathy
     Dosage: TAKE 1 CAPSULE BY MOUTH EVERY MORNING FOR 21 DAYS, THEN OFF 7 DAYS EVERY 28 DAY CYCLE
     Route: 048
     Dates: start: 20240919

REACTIONS (8)
  - Pain [Unknown]
  - Fatigue [Unknown]
  - Blood glucose abnormal [Unknown]
  - Rash [Unknown]
  - Dry skin [Unknown]
  - Pruritus [Unknown]
  - Salmonellosis [Unknown]
  - Renal failure [Unknown]

NARRATIVE: CASE EVENT DATE: 20240926
